FAERS Safety Report 12871536 (Version 1)
Quarter: 2016Q4

REPORT INFORMATION
  Report Type: Spontaneous
  Country: US (occurrence: US)
  Receive Date: 20161021
  Receipt Date: 20161021
  Transmission Date: 20170207
  Serious: No
  Sender: FDA-Public Use
  Company Number: None

PATIENT
  Sex: Female

DRUGS (2)
  1. ENALAPRIL MALEATE ENALAPRILAT [Suspect]
     Active Substance: ENALAPRIL MALEATE
  2. ESCITALOPRAM OXALATE ESCITALOPRAM [Suspect]
     Active Substance: ESCITALOPRAM OXALATE

REACTIONS (2)
  - Drug dispensing error [None]
  - Physical product label issue [None]
